FAERS Safety Report 24824001 (Version 1)
Quarter: 2025Q1

REPORT INFORMATION
  Report Type: Spontaneous
  Country: US (occurrence: US)
  Receive Date: 20250109
  Receipt Date: 20250109
  Transmission Date: 20250409
  Serious: No
  Sender: AMGEN
  Company Number: US-AMGEN-USASP2025001205

PATIENT
  Age: 58 Year
  Sex: Male

DRUGS (4)
  1. PREDNISONE [Suspect]
     Active Substance: PREDNISONE
     Indication: Acute kidney injury
     Route: 065
  2. CELLCEPT [Concomitant]
     Active Substance: MYCOPHENOLATE MOFETIL
     Indication: Acute kidney injury
  3. TACROLIMUS [Concomitant]
     Active Substance: TACROLIMUS
     Indication: Acute kidney injury
  4. BACTRIM [Concomitant]
     Active Substance: SULFAMETHOXAZOLE\TRIMETHOPRIM
     Indication: Acute kidney injury

REACTIONS (5)
  - Retroperitoneal lymphadenopathy [Unknown]
  - Viraemia [Unknown]
  - Ulcer [Unknown]
  - Fungal infection [Unknown]
  - Off label use [Unknown]
